FAERS Safety Report 9002102 (Version 2)
Quarter: 2013Q1

REPORT INFORMATION
  Report Type: Spontaneous
  Country: US (occurrence: US)
  Receive Date: 20130107
  Receipt Date: 20130118
  Transmission Date: 20140127
  Serious: Yes (Death)
  Sender: FDA-Public Use
  Company Number: US-PFIZER INC-2013004084

PATIENT
  Age: 47 Year
  Sex: Female

DRUGS (2)
  1. OXYCODONE HYDROCHLORIDE [Suspect]
     Dosage: UNK
  2. CITALOPRAM [Suspect]
     Dosage: UNK

REACTIONS (1)
  - Drug abuse [Fatal]
